FAERS Safety Report 4621219-0 (Version None)
Quarter: 2005Q1

REPORT INFORMATION
  Report Type: 
  Country: None (occurrence: None)
  Receive Date: 20050321
  Receipt Date: 20050321
  Transmission Date: 20050727
  Serious: Yes (Death)
  Sender: FDA-Public Use
  Company Number: None

PATIENT
  Age: 73 Year
  Sex: Male
  Weight: 54.4316 kg

DRUGS (1)
  1. AVASTIN [Suspect]
     Indication: COLON CANCER METASTATIC
     Dosage: EVERY 14 DAY   INTRAVENOUS
     Route: 042
     Dates: start: 20040901, end: 20050121

REACTIONS (4)
  - DIZZINESS [None]
  - LETHARGY [None]
  - LISTLESS [None]
  - SUBARACHNOID HAEMORRHAGE [None]
